FAERS Safety Report 5726187-6 (Version None)
Quarter: 2008Q2

REPORT INFORMATION
  Report Type: 
  Country: None (occurrence: None)
  Receive Date: 20080502
  Receipt Date: 20080424
  Transmission Date: 20081010
  Serious: Yes (Death)
  Sender: FDA-Public Use
  Company Number: AU-JNJFOC-20080407457

PATIENT
  Age: 3 Decade
  Sex: Male

DRUGS (2)
  1. DURAGESIC-100 [Suspect]
     Indication: PAIN
     Route: 062
  2. DURAGESIC-100 [Suspect]
     Indication: MUSCULAR DYSTROPHY
     Route: 062

REACTIONS (2)
  - ANALGESIC DRUG LEVEL INCREASED [None]
  - DEATH [None]
